FAERS Safety Report 20696944 (Version 1)
Quarter: 2022Q2

REPORT INFORMATION
  Report Type: Report from Study
  Country: US (occurrence: None)
  Receive Date: 20220411
  Receipt Date: 20220411
  Transmission Date: 20220721
  Serious: Yes (Hospitalization)
  Sender: FDA-Public Use
  Company Number: 2022A138684

PATIENT
  Age: 30309 Day

DRUGS (1)
  1. LOKELMA [Suspect]
     Active Substance: SODIUM ZIRCONIUM CYCLOSILICATE
     Indication: Chronic kidney disease
     Route: 048
     Dates: start: 20220307

REACTIONS (4)
  - Tremor [Recovered/Resolved]
  - Balance disorder [Recovered/Resolved]
  - Dysarthria [Recovered/Resolved]
  - Dysstasia [Unknown]

NARRATIVE: CASE EVENT DATE: 20220312
